FAERS Safety Report 22049189 (Version 1)
Quarter: 2023Q1

REPORT INFORMATION
  Report Type: Spontaneous
  Country: US (occurrence: None)
  Receive Date: 20230228
  Receipt Date: 20230228
  Transmission Date: 20230417
  Serious: Yes (Life-Threatening, Hospitalization, Disabling)
  Sender: FDA-Public Use
  Company Number: None

PATIENT
  Age: 34 Year
  Sex: Male
  Weight: 101.25 kg

DRUGS (1)
  1. KLONOPIN [Suspect]
     Active Substance: CLONAZEPAM
     Dates: start: 20130201, end: 20210619

REACTIONS (9)
  - Akathisia [None]
  - Tinnitus [None]
  - Back pain [None]
  - Anhedonia [None]
  - Anxiety [None]
  - Agoraphobia [None]
  - Fatigue [None]
  - Libido decreased [None]
  - Impaired work ability [None]

NARRATIVE: CASE EVENT DATE: 20200601
